FAERS Safety Report 17338004 (Version 1)
Quarter: 2020Q1

REPORT INFORMATION
  Report Type: Spontaneous
  Country: GB (occurrence: GB)
  Receive Date: 20200129
  Receipt Date: 20200129
  Transmission Date: 20200409
  Serious: Yes (Life-Threatening, Other)
  Sender: FDA-Public Use
  Company Number: GB-TEVA-2020-GB-1175541

PATIENT
  Age: 51 Year
  Sex: Male

DRUGS (4)
  1. FOLIC ACID. [Concomitant]
     Active Substance: FOLIC ACID
  2. PREGABALIN. [Suspect]
     Active Substance: PREGABALIN
     Dosage: 1500 MG
     Route: 048
     Dates: start: 20191029
  3. PREGABALIN. [Suspect]
     Active Substance: PREGABALIN
     Dosage: 1500 MG
     Route: 048
     Dates: start: 20161111
  4. BUPRENORPHINE. [Concomitant]
     Active Substance: BUPRENORPHINE

REACTIONS (2)
  - Pancytopenia [Recovered/Resolved]
  - Substance use [Unknown]

NARRATIVE: CASE EVENT DATE: 20191029
